FAERS Safety Report 10459177 (Version 1)
Quarter: 2014Q3

REPORT INFORMATION
  Report Type: Report from Study
  Country: CA (occurrence: CA)
  Receive Date: 20140917
  Receipt Date: 20140917
  Transmission Date: 20150326
  Serious: Yes (Other)
  Sender: FDA-Public Use
  Company Number: CA-JNJFOC-20140909810

PATIENT
  Age: 22 Year
  Sex: Male
  Weight: 61 kg

DRUGS (1)
  1. REMICADE [Suspect]
     Active Substance: INFLIXIMAB
     Indication: CROHN^S DISEASE
     Route: 042
     Dates: start: 201103

REACTIONS (8)
  - Chills [Unknown]
  - Haematochezia [Unknown]
  - Abdominal pain [Unknown]
  - Frequent bowel movements [Unknown]
  - Flushing [Recovered/Resolved]
  - Tachycardia [Not Recovered/Not Resolved]
  - Headache [Unknown]
  - Pyrexia [Recovered/Resolved]

NARRATIVE: CASE EVENT DATE: 20140909
